FAERS Safety Report 8378794-2 (Version None)
Quarter: 2012Q2

REPORT INFORMATION
  Report Type: 
  Country: None (occurrence: None)
  Receive Date: 20120523
  Receipt Date: 20120515
  Transmission Date: 20120825
  Serious: Yes (Other)
  Sender: FDA-Public Use
  Company Number: US-ABBOTT-12P-163-0934607-00

PATIENT
  Sex: Female
  Weight: 59.928 kg

DRUGS (5)
  1. SIMCOR [Suspect]
     Indication: BLOOD TRIGLYCERIDES INCREASED
     Dates: start: 20100101
  2. VITAMIN D [Concomitant]
     Indication: PRODUCT USED FOR UNKNOWN INDICATION
  3. MULTI-VITAMIN [Concomitant]
     Indication: PRODUCT USED FOR UNKNOWN INDICATION
  4. SIMCOR [Suspect]
     Indication: BLOOD CHOLESTEROL INCREASED
     Dosage: 500/20MG DAILY AT BEDTIME
     Dates: start: 20120507
  5. ASPIRIN [Concomitant]
     Indication: PRODUCT USED FOR UNKNOWN INDICATION

REACTIONS (11)
  - HYPERSENSITIVITY [None]
  - ERYTHEMA [None]
  - COUGH [None]
  - ASTHENIA [None]
  - RHINORRHOEA [None]
  - VIRAL INFECTION [None]
  - ANKLE FRACTURE [None]
  - FLUSHING [None]
  - PAIN [None]
  - FALL [None]
  - HEADACHE [None]
